FAERS Safety Report 10789272 (Version 1)
Quarter: 2015Q1

REPORT INFORMATION
  Report Type: Spontaneous
  Country: US (occurrence: US)
  Receive Date: 20150212
  Receipt Date: 20150212
  Transmission Date: 20150721
  Serious: Yes (Life-Threatening, Hospitalization)
  Sender: FDA-Public Use
  Company Number: US-GLAXOSMITHKLINE-A1057097A

PATIENT

DRUGS (18)
  1. CITALOPRAM [Concomitant]
     Active Substance: CITALOPRAM HYDROBROMIDE
  2. TRIAMTERENE. [Concomitant]
     Active Substance: TRIAMTERENE
  3. VITAMIN D [Concomitant]
     Active Substance: CHOLECALCIFEROL
  4. VELCADE [Concomitant]
     Active Substance: BORTEZOMIB
  5. ACYCLOVIR. [Concomitant]
     Active Substance: ACYCLOVIR
  6. ATIVAN [Concomitant]
     Active Substance: LORAZEPAM
  7. CODEINE [Concomitant]
     Active Substance: CODEINE
  8. HYDROCHLOROTHIAZIDE. [Concomitant]
     Active Substance: HYDROCHLOROTHIAZIDE
  9. GABAPENTIN. [Concomitant]
     Active Substance: GABAPENTIN
  10. LISINOPRIL. [Concomitant]
     Active Substance: LISINOPRIL
  11. OMEPRAZOLE. [Concomitant]
     Active Substance: OMEPRAZOLE
  12. LOPERAMIDE [Concomitant]
     Active Substance: LOPERAMIDE
  13. ARIXTRA [Suspect]
     Active Substance: FONDAPARINUX SODIUM
     Indication: PULMONARY EMBOLISM
     Dosage: 7.5 MG
     Route: 058
     Dates: start: 201307
  14. ATENOLOL. [Concomitant]
     Active Substance: ATENOLOL
  15. CALCIUM [Concomitant]
     Active Substance: CALCIUM
  16. FIORICET [Concomitant]
     Active Substance: ACETAMINOPHEN\BUTALBITAL\CAFFEINE
  17. ONDANSETRON [Concomitant]
     Active Substance: ONDANSETRON
  18. MIRALAX [Concomitant]
     Active Substance: POLYETHYLENE GLYCOL 3350

REACTIONS (1)
  - Retroperitoneal haemorrhage [Not Recovered/Not Resolved]

NARRATIVE: CASE EVENT DATE: 20140113
